FAERS Safety Report 4295463-9 (Version None)
Quarter: 2004Q1

REPORT INFORMATION
  Report Type: 
  Country: None (occurrence: None)
  Receive Date: 20040216
  Receipt Date: 20040210
  Transmission Date: 20041129
  Serious: Yes (Hospitalization)
  Sender: FDA-Public Use
  Company Number: FR-ROCHE-358542

PATIENT
  Age: 87 Year
  Sex: Male
  Weight: 53 kg

DRUGS (7)
  1. ROCEPHIN [Suspect]
     Indication: BRONCHOPNEUMOPATHY
     Dosage: FORMULATION REPORTED AS INJECTABLE SOLUTION.
     Route: 058
     Dates: start: 20001018, end: 20001023
  2. BACTRIM DS [Suspect]
     Indication: BRONCHOPNEUMOPATHY
     Route: 048
     Dates: start: 20001019, end: 20001025
  3. LASILIX [Concomitant]
     Dates: start: 20001025
  4. SCOPOLAMINE [Concomitant]
     Indication: BRONCHIAL OBSTRUCTION
     Dates: start: 20000814
  5. FORLAX [Concomitant]
     Indication: CONSTIPATION
     Dates: start: 20000104
  6. SINEMET [Concomitant]
     Indication: PARKINSON'S DISEASE
     Dates: start: 20000915
  7. MOTILIUM [Concomitant]
     Dates: start: 20000104

REACTIONS (1)
  - RENAL TUBULAR DISORDER [None]
